FAERS Safety Report 5350161-5 (Version None)
Quarter: 2007Q2

REPORT INFORMATION
  Report Type: 
  Country: None (occurrence: None)
  Receive Date: 20070521
  Receipt Date: 20070314
  Transmission Date: 20071010
  Serious: No
  Sender: FDA-Public Use
  Company Number: WAES 0703USA02782

PATIENT
  Age: 56 Year
  Sex: Male

DRUGS (4)
  1. JANUVIA [Suspect]
     Indication: DIABETES MELLITUS NON-INSULIN-DEPENDENT
     Dosage: PO
     Route: 048
     Dates: start: 20070215
  2. CRESTOR [Concomitant]
  3. ZOSTAVAX [Concomitant]
  4. GABAPENTIN [Concomitant]

REACTIONS (2)
  - HERPES ZOSTER [None]
  - VISION BLURRED [None]
